FAERS Safety Report 24760116 (Version 3)
Quarter: 2025Q1

REPORT INFORMATION
  Report Type: Report from Study
  Country: US (occurrence: US)
  Receive Date: 20241220
  Receipt Date: 20250127
  Transmission Date: 20250408
  Serious: Yes (Other)
  Sender: EXELIXIS
  Company Number: US-EXELIXIS-EXL-2024-001748

PATIENT
  Sex: Male

DRUGS (2)
  1. CABOMETYX [Suspect]
     Active Substance: CABOZANTINIB S-MALATE
     Indication: Renal cancer
     Dosage: 40 MG, QD
     Route: 048
  2. CABOMETYX [Suspect]
     Active Substance: CABOZANTINIB S-MALATE
     Dosage: 40 MG, QD
     Route: 048

REACTIONS (19)
  - Neuropathy peripheral [Unknown]
  - Hair texture abnormal [Unknown]
  - Temperature regulation disorder [Unknown]
  - Contusion [Unknown]
  - Alopecia [Unknown]
  - Taste disorder [Unknown]
  - Pruritus [Unknown]
  - Fatigue [Unknown]
  - Dry skin [Unknown]
  - Nausea [Unknown]
  - Asthenia [Unknown]
  - Malaise [Unknown]
  - Diarrhoea [Unknown]
  - Skin disorder [Unknown]
  - Nipple pain [Unknown]
  - Lacrimation increased [Unknown]
  - Rhinorrhoea [Unknown]
  - Back pain [Unknown]
  - Pain [Unknown]
